FAERS Safety Report 7310107-7 (Version None)
Quarter: 2011Q1

REPORT INFORMATION
  Report Type: 
  Country: None (occurrence: None)
  Receive Date: 20110224
  Receipt Date: 20110215
  Transmission Date: 20110831
  Serious: No
  Sender: FDA-Public Use
  Company Number: US-PFIZER INC-2010138764

PATIENT
  Sex: Male
  Weight: 64.8 kg

DRUGS (3)
  1. ACETYLSALICYLIC ACID [Concomitant]
     Dosage: 81 MG, UNK
     Route: 048
  2. LIPITOR [Suspect]
     Indication: HYPERCHOLESTEROLAEMIA
     Dosage: 20 MG, 1X/DAY
     Route: 048
     Dates: start: 20000101
  3. MULTIVITAMIN [Concomitant]
     Dosage: UNK

REACTIONS (3)
  - WEIGHT DECREASED [None]
  - ABDOMINAL DISCOMFORT [None]
  - NAUSEA [None]
